FAERS Safety Report 5004521-2 (Version None)
Quarter: 2006Q2

REPORT INFORMATION
  Report Type: 
  Country: None (occurrence: None)
  Receive Date: 20060511
  Receipt Date: 20060501
  Transmission Date: 20061013
  Serious: Yes (Hospitalization, Other)
  Sender: FDA-Public Use
  Company Number: TRP_0670_2005

PATIENT
  Age: 43 Year
  Sex: Male
  Weight: 133.8111 kg

DRUGS (3)
  1. RIBASPHERE [Suspect]
     Indication: HEPATITIS C
     Dosage: 600 MG BID PO
     Route: 048
     Dates: start: 20050824, end: 20051101
  2. PEG-INTRON [Suspect]
     Indication: HEPATITIS C
     Dosage: 150 MCG QWK SC
     Route: 058
     Dates: start: 20050824, end: 20051101
  3. IBPROFEN [Concomitant]

REACTIONS (15)
  - AMMONIA INCREASED [None]
  - ASCITES [None]
  - COMA HEPATIC [None]
  - DIVERTICULITIS [None]
  - DRUG ABUSER [None]
  - DRUG SCREEN POSITIVE [None]
  - HALLUCINATION, VISUAL [None]
  - HEPATIC ENCEPHALOPATHY [None]
  - HYPERSOMNIA [None]
  - INJECTION SITE ERYTHEMA [None]
  - INJECTION SITE PAIN [None]
  - MEMORY IMPAIRMENT [None]
  - OEDEMA PERIPHERAL [None]
  - PLATELET COUNT DECREASED [None]
  - RASH [None]
